FAERS Safety Report 4569250-8 (Version None)
Quarter: 2005Q1

REPORT INFORMATION
  Report Type: 
  Country: None (occurrence: None)
  Receive Date: 20050203
  Receipt Date: 20041214
  Transmission Date: 20050727
  Serious: Yes (Life-Threatening, Hospitalization, Disabling)
  Sender: FDA-Public Use
  Company Number: US-MERCK-0412USA01782

PATIENT
  Age: 63 Year
  Sex: Male

DRUGS (5)
  1. VIOXX [Suspect]
     Indication: ARTHROPATHY
     Route: 048
     Dates: start: 19990701
  2. VIOXX [Suspect]
     Route: 065
     Dates: start: 20040101, end: 20041001
  3. VIOXX [Suspect]
     Indication: ARTHRITIS
     Route: 048
     Dates: start: 19990701
  4. VIOXX [Suspect]
     Route: 065
     Dates: start: 20040101, end: 20041001
  5. ALLOPURINOL [Concomitant]
     Route: 065

REACTIONS (16)
  - ANGINA UNSTABLE [None]
  - CEREBROVASCULAR ACCIDENT [None]
  - CHEST PAIN [None]
  - CORONARY ARTERY DISEASE [None]
  - DEPRESSION [None]
  - DYSLIPIDAEMIA [None]
  - DYSPNOEA [None]
  - EMOTIONAL DISTRESS [None]
  - FLATULENCE [None]
  - GOUT [None]
  - HEMIPARESIS [None]
  - HYPERLIPIDAEMIA [None]
  - LOCAL SWELLING [None]
  - MYOCARDIAL INFARCTION [None]
  - SUICIDE ATTEMPT [None]
  - VENTRICULAR DYSFUNCTION [None]
